FAERS Safety Report 7679097-1 (Version None)
Quarter: 2011Q3

REPORT INFORMATION
  Report Type: 
  Country: None (occurrence: None)
  Receive Date: 20110812
  Receipt Date: 20110801
  Transmission Date: 20111222
  Serious: Yes (Other)
  Sender: FDA-Public Use
  Company Number: JP-AMGEN-JPNCT2011005553

PATIENT
  Age: 51 Year
  Sex: Female
  Weight: 39 kg

DRUGS (23)
  1. CALCICOL [Concomitant]
     Dosage: UNK
     Route: 042
  2. SENNOSIDE [Concomitant]
     Dosage: UNK
     Route: 048
  3. LEUCOVORIN CALCIUM [Suspect]
     Indication: COLORECTAL CANCER
     Route: 041
     Dates: start: 20101109, end: 20110616
  4. HIRUDOID [Concomitant]
     Dosage: UNK
     Route: 062
  5. MINOCYCLINE HYDROCHLORIDE [Concomitant]
     Dosage: UNK
     Route: 048
  6. FERROUS CITRATE [Concomitant]
     Dosage: UNK
     Route: 048
  7. PANITUMUMAB [Suspect]
     Dosage: 6 MG/KG, Q2WK
     Route: 041
     Dates: start: 20110614, end: 20110614
  8. GRANISETRON [Concomitant]
     Dosage: UNK
     Route: 042
  9. MAGMITT [Concomitant]
     Route: 048
  10. PANITUMUMAB [Suspect]
     Dosage: 6 MG/KG, Q2WK
     Route: 041
     Dates: start: 20101214, end: 20101214
  11. PANITUMUMAB [Suspect]
     Dosage: 6 MG/KG, Q2WK
     Route: 041
     Dates: start: 20110222, end: 20110222
  12. CORTICOSTEROIDS [Concomitant]
     Indication: PROPHYLAXIS
     Dosage: UNK
     Route: 065
  13. MAGNESIUM SULFATE [Concomitant]
     Dosage: UNK
     Route: 042
  14. PANITUMUMAB [Suspect]
     Dosage: 6 MG/KG, Q2WK
     Route: 041
     Dates: start: 20110118, end: 20110118
  15. FLUOROURACIL [Suspect]
     Indication: COLORECTAL CANCER
     Route: 040
     Dates: start: 20101109, end: 20110616
  16. DEXAMETHASONE SODIUM PHOSPHATE [Concomitant]
     Dosage: UNK
     Route: 042
  17. KENALOG [Concomitant]
     Dosage: UNK
     Route: 049
  18. PANITUMUMAB [Suspect]
     Indication: COLORECTAL CANCER
     Dosage: 6 MG/KG, Q2WK
     Route: 041
     Dates: start: 20101109, end: 20101109
  19. PANITUMUMAB [Suspect]
     Dosage: 6 MG/KG, Q2WK
     Route: 041
     Dates: start: 20110510, end: 20110510
  20. FLUOROURACIL [Suspect]
     Route: 041
     Dates: start: 20101109, end: 20110616
  21. ANTIHISTAMINES [Concomitant]
     Indication: PROPHYLAXIS
     Dosage: UNK
     Route: 065
  22. PANITUMUMAB [Suspect]
     Dosage: 6 MG/KG, Q2WK
     Route: 041
     Dates: start: 20110329, end: 20110329
  23. OXALIPLATIN [Suspect]
     Indication: COLORECTAL CANCER
     Dosage: 100 MG, Q2WK
     Route: 041
     Dates: start: 20101109, end: 20110616

REACTIONS (3)
  - WHITE BLOOD CELL COUNT DECREASED [None]
  - DERMATITIS ACNEIFORM [None]
  - STOMATITIS [None]
